FAERS Safety Report 12699636 (Version 1)
Quarter: 2016Q3

REPORT INFORMATION
  Report Type: Spontaneous
  Country: US (occurrence: US)
  Receive Date: 20160830
  Receipt Date: 20160830
  Transmission Date: 20161109
  Serious: Yes (Other)
  Sender: FDA-Public Use
  Company Number: US-TORRENT-00001264

PATIENT
  Age: 81 Year
  Sex: Female

DRUGS (1)
  1. PRAMIPEXOLE DIHYDROCHLORIDE TABLET [Suspect]
     Active Substance: PRAMIPEXOLE DIHYDROCHLORIDE
     Indication: PRODUCT USED FOR UNKNOWN INDICATION
     Dosage: 1/2 TABLET THREE TIMES A DAY FOR 7 DAYS THEN 1 TABLET THREE TIMES A DAY
     Route: 048

REACTIONS (5)
  - Abasia [Unknown]
  - Fall [Unknown]
  - Speech disorder [Unknown]
  - Fear of falling [Unknown]
  - Drug ineffective [Unknown]
